FAERS Safety Report 9461613 (Version 1)
Quarter: 2013Q3

REPORT INFORMATION
  Report Type: Spontaneous
  Country: IT (occurrence: IT)
  Receive Date: 20130816
  Receipt Date: 20130816
  Transmission Date: 20140515
  Serious: Yes (Hospitalization, Other)
  Sender: FDA-Public Use
  Company Number: IT-ASTRAZENECA-2013SE62617

PATIENT
  Age: 28738 Day
  Sex: Male

DRUGS (9)
  1. SEROQUEL [Suspect]
     Route: 048
     Dates: start: 20130627
  2. RIVOTRIL [Suspect]
     Dosage: 2.5 MG/ML ORAL DROPS, 10 GTT DAILY.
     Route: 048
     Dates: start: 20130627
  3. NEBIVOLOL [Concomitant]
  4. SERTRALINE [Concomitant]
  5. NEXIUM [Concomitant]
  6. DINTOINA [Concomitant]
  7. KEPPRA [Concomitant]
  8. CARDIOASPIRIN [Concomitant]
     Dosage: 100 MG GASTRORESISTANT TABLET
  9. TAREG [Concomitant]

REACTIONS (2)
  - Sopor [Recovering/Resolving]
  - Cerebral ischaemia [Unknown]
